FAERS Safety Report 10572602 (Version 12)
Quarter: 2018Q2

REPORT INFORMATION
  Report Type: Report from Study
  Country: DE (occurrence: DE)
  Receive Date: 20141110
  Receipt Date: 20180502
  Transmission Date: 20180711
  Serious: Yes (Death, Hospitalization, Other)
  Sender: FDA-Public Use
  Company Number: DE-ROCHE-1406183

PATIENT
  Age: 63 Year
  Sex: Female
  Weight: 71 kg

DRUGS (53)
  1. IRINOTECAN [Suspect]
     Active Substance: IRINOTECAN
     Indication: COLORECTAL CANCER METASTATIC
     Dosage: SUBSEQUENT DOSES ON 10/APR/2014, 23/APR/2014 AND ON 07/MAY/2014
     Route: 042
     Dates: start: 20140327
  2. 5-FU [Suspect]
     Active Substance: FLUOROURACIL
     Route: 042
     Dates: start: 20140327, end: 20140329
  3. ONDANSETRON [Concomitant]
     Active Substance: ONDANSETRON
     Indication: VOMITING
     Route: 042
     Dates: start: 20140327
  4. PREDNISOLONE. [Concomitant]
     Active Substance: PREDNISOLONE
     Indication: RHEUMATOID ARTHRITIS
     Route: 048
  5. PANTOPRAZOLE [Concomitant]
     Active Substance: PANTOPRAZOLE
     Route: 048
     Dates: start: 20140708
  6. METAMIZOL [Concomitant]
     Active Substance: METAMIZOLE SODIUM
     Route: 048
     Dates: start: 20140708
  7. BEVACIZUMAB. [Suspect]
     Active Substance: BEVACIZUMAB
     Route: 042
     Dates: start: 20140410, end: 20140410
  8. BEVACIZUMAB. [Suspect]
     Active Substance: BEVACIZUMAB
     Route: 042
     Dates: start: 20140507, end: 20140507
  9. 5-FU [Suspect]
     Active Substance: FLUOROURACIL
     Route: 042
     Dates: start: 20140423, end: 20140425
  10. 5-FU [Suspect]
     Active Substance: FLUOROURACIL
     Route: 042
     Dates: start: 20140625, end: 20140627
  11. FOLINIC ACID [Concomitant]
     Active Substance: LEUCOVORIN
     Route: 042
     Dates: start: 20140611, end: 20140611
  12. FOLINIC ACID [Concomitant]
     Active Substance: LEUCOVORIN
     Route: 042
     Dates: start: 20140626, end: 20140626
  13. PANTOPRAZOLE [Concomitant]
     Active Substance: PANTOPRAZOLE
     Indication: ABDOMINAL DISCOMFORT
     Route: 048
     Dates: start: 20140320, end: 20140707
  14. METAMIZOL [Concomitant]
     Active Substance: METAMIZOLE SODIUM
     Indication: ANALGESIC THERAPY
     Route: 048
     Dates: start: 20140524, end: 20140707
  15. BEVACIZUMAB. [Suspect]
     Active Substance: BEVACIZUMAB
     Route: 042
     Dates: start: 20140827, end: 20140827
  16. 5-FU [Suspect]
     Active Substance: FLUOROURACIL
     Route: 042
     Dates: start: 20140410, end: 20140412
  17. DEXAMETHASON [Concomitant]
     Active Substance: DEXAMETHASONE
     Indication: NAUSEA
  18. FOLINIC ACID [Concomitant]
     Active Substance: LEUCOVORIN
     Route: 042
     Dates: start: 20140827, end: 20140827
  19. CANDESARTAN. [Concomitant]
     Active Substance: CANDESARTAN
     Indication: HYPERTENSION
     Route: 048
     Dates: end: 20140923
  20. DOXEPIN [Concomitant]
     Active Substance: DOXEPIN
     Indication: DEPRESSION
     Route: 048
  21. METOCLOPRAMIDE. [Concomitant]
     Active Substance: METOCLOPRAMIDE
     Route: 048
     Dates: start: 20140524, end: 20140607
  22. 5-FU [Suspect]
     Active Substance: FLUOROURACIL
     Route: 042
     Dates: start: 20140730, end: 20140801
  23. 5-FU [Suspect]
     Active Substance: FLUOROURACIL
     Route: 042
     Dates: start: 20140827, end: 20140829
  24. FOLINIC ACID [Concomitant]
     Active Substance: LEUCOVORIN
     Indication: COLORECTAL CANCER
     Route: 042
     Dates: start: 20140327, end: 20140327
  25. FOLINIC ACID [Concomitant]
     Active Substance: LEUCOVORIN
     Route: 042
     Dates: start: 20140410, end: 20140410
  26. FOLINIC ACID [Concomitant]
     Active Substance: LEUCOVORIN
     Route: 042
     Dates: start: 20140507, end: 20140507
  27. FOLINIC ACID [Concomitant]
     Active Substance: LEUCOVORIN
     Route: 042
     Dates: start: 20140716, end: 20140716
  28. 5-FU [Suspect]
     Active Substance: FLUOROURACIL
     Route: 040
     Dates: start: 20140507
  29. 5-FU [Suspect]
     Active Substance: FLUOROURACIL
     Route: 042
     Dates: start: 20140528, end: 20140530
  30. DEXAMETHASON [Concomitant]
     Active Substance: DEXAMETHASONE
     Indication: VOMITING
     Route: 042
     Dates: start: 20140327
  31. FOLINIC ACID [Concomitant]
     Active Substance: LEUCOVORIN
     Route: 042
     Dates: start: 20140528, end: 20140528
  32. FOLINIC ACID [Concomitant]
     Active Substance: LEUCOVORIN
     Route: 042
     Dates: start: 20140813, end: 20140813
  33. VALSARTAN. [Concomitant]
     Active Substance: VALSARTAN
     Indication: HYPERTENSION
     Route: 048
     Dates: start: 20140924
  34. BEVACIZUMAB. [Suspect]
     Active Substance: BEVACIZUMAB
     Indication: COLORECTAL CANCER METASTATIC
     Route: 042
     Dates: start: 20140327, end: 20140327
  35. BEVACIZUMAB. [Suspect]
     Active Substance: BEVACIZUMAB
     Route: 042
     Dates: start: 20140716, end: 20140716
  36. 5-FU [Suspect]
     Active Substance: FLUOROURACIL
     Route: 042
     Dates: start: 20140507, end: 20140509
  37. 5-FU [Suspect]
     Active Substance: FLUOROURACIL
     Route: 042
     Dates: start: 20140611, end: 20140613
  38. ONDANSETRON [Concomitant]
     Active Substance: ONDANSETRON
     Indication: PROPHYLAXIS OF NAUSEA AND VOMITING
  39. IRINOTECAN [Suspect]
     Active Substance: IRINOTECAN
     Dosage: 225 MG ?SUBSEQUENT DOSES ON 11/JUN/2014, 25/JUN/2014, 16/JUL/2014, 30/JUL/2014, 13/AUG/2014, ON 27/A
     Route: 042
     Dates: start: 20140528
  40. 5-FU [Suspect]
     Active Substance: FLUOROURACIL
     Indication: COLORECTAL CANCER METASTATIC
     Dosage: SUBSEQUENT DOSES ON 10/APR/2014 AND ON 23/APR/2014
     Route: 040
     Dates: start: 20140327
  41. 5-FU [Suspect]
     Active Substance: FLUOROURACIL
     Route: 042
     Dates: start: 20140716, end: 20140718
  42. 5-FU [Suspect]
     Active Substance: FLUOROURACIL
     Route: 042
     Dates: start: 20140813, end: 20140815
  43. 5-FU [Suspect]
     Active Substance: FLUOROURACIL
     Dosage: 450-680MG
     Route: 040
     Dates: start: 20140327, end: 20140827
  44. 5-FU [Suspect]
     Active Substance: FLUOROURACIL
     Dosage: 450-680MG
     Route: 040
     Dates: start: 20140410, end: 20140410
  45. FOLINIC ACID [Concomitant]
     Active Substance: LEUCOVORIN
     Route: 042
     Dates: start: 20140423, end: 20140423
  46. HYDROCHLOROTHIAZIDE. [Concomitant]
     Active Substance: HYDROCHLOROTHIAZIDE
     Indication: HYPERTENSION
     Route: 048
  47. FENTANYL. [Concomitant]
     Active Substance: FENTANYL
     Indication: ANALGESIC THERAPY
     Dosage: PRO HOUR
     Route: 065
  48. METOCLOPRAMIDE. [Concomitant]
     Active Substance: METOCLOPRAMIDE
     Route: 048
     Dates: start: 20140708
  49. 5-FU [Suspect]
     Active Substance: FLUOROURACIL
     Dosage: SUBSEQUENT DOSES ON 11/JUN/2014, 25/JUN/2014, 16/JUL/2014, 30/JUL/2014, 13/AUG/2014 AND ON 27/AUG/20
     Route: 040
     Dates: start: 20140528
  50. 5-FU [Suspect]
     Active Substance: FLUOROURACIL
     Dosage: 450-680MG
     Route: 040
     Dates: start: 20140329, end: 20140329
  51. FOLINIC ACID [Concomitant]
     Active Substance: LEUCOVORIN
     Route: 042
     Dates: start: 20140730, end: 20140730
  52. METHOTREXATE. [Concomitant]
     Active Substance: METHOTREXATE
     Indication: RHEUMATOID ARTHRITIS
     Route: 065
     Dates: end: 201403
  53. METOCLOPRAMIDE. [Concomitant]
     Active Substance: METOCLOPRAMIDE
     Indication: PROPHYLAXIS OF NAUSEA AND VOMITING
     Route: 048
     Dates: start: 20140326, end: 20140523

REACTIONS (21)
  - Dehydration [Recovered/Resolved]
  - Abdominal pain [Unknown]
  - Nausea [Recovered/Resolved]
  - Abdominal pain upper [Not Recovered/Not Resolved]
  - Dehydration [Recovered/Resolved]
  - Stomatitis [Recovered/Resolved]
  - Dry mouth [Not Recovered/Not Resolved]
  - Ascites [Fatal]
  - General physical health deterioration [Recovered/Resolved]
  - Nausea [Recovered/Resolved]
  - Constipation [Recovered/Resolved]
  - Dyschezia [Not Recovered/Not Resolved]
  - Oedema peripheral [Recovered/Resolved]
  - Diarrhoea [Not Recovered/Not Resolved]
  - Diarrhoea [Recovered/Resolved]
  - Hepatic failure [Recovered/Resolved]
  - Decreased appetite [Not Recovered/Not Resolved]
  - Constipation [Recovered/Resolved]
  - Nausea [Recovered/Resolved]
  - Decreased appetite [Not Recovered/Not Resolved]
  - Palmar-plantar erythrodysaesthesia syndrome [Not Recovered/Not Resolved]

NARRATIVE: CASE EVENT DATE: 20140328
